FAERS Safety Report 9901644 (Version 1)
Quarter: 2014Q1

REPORT INFORMATION
  Report Type: Spontaneous
  Country: US (occurrence: US)
  Receive Date: 20140217
  Receipt Date: 20140217
  Transmission Date: 20141002
  Serious: No
  Sender: FDA-Public Use
  Company Number: US-BAYER-2014-017367

PATIENT
  Sex: Female

DRUGS (1)
  1. GIANVI [Suspect]
     Indication: MENSTRUAL CYCLE MANAGEMENT
     Route: 048

REACTIONS (3)
  - Off label use [None]
  - Dizziness [None]
  - Nausea [None]
